FAERS Safety Report 24078622 (Version 1)
Quarter: 2024Q3

REPORT INFORMATION
  Report Type: Spontaneous
  Country: AU (occurrence: AU)
  Receive Date: 20240711
  Receipt Date: 20240711
  Transmission Date: 20241017
  Serious: Yes (Other)
  Sender: ROCHE
  Company Number: AU-ROCHE-3571563

PATIENT
  Age: 38 Year
  Sex: Female

DRUGS (2)
  1. PERJETA [Suspect]
     Active Substance: PERTUZUMAB
     Indication: Breast cancer metastatic
     Route: 065
  2. HERCEPTIN [Suspect]
     Active Substance: TRASTUZUMAB
     Indication: Breast cancer metastatic
     Route: 065

REACTIONS (6)
  - Visual acuity reduced [Unknown]
  - Vision blurred [Unknown]
  - Corneal transplant [Unknown]
  - Endothelial dysfunction [Unknown]
  - Ill-defined disorder [Unknown]
  - Blindness [Unknown]
